FAERS Safety Report 23757729 (Version 1)
Quarter: 2024Q2

REPORT INFORMATION
  Report Type: Spontaneous
  Country: GT (occurrence: NL)
  Receive Date: 20240418
  Receipt Date: 20240418
  Transmission Date: 20240716
  Serious: Yes (Other)
  Sender: FDA-Public Use
  Company Number: GT-HORIZON THERAPEUTICS-HZN-2024-004207

PATIENT

DRUGS (5)
  1. PREDNISONE [Suspect]
     Active Substance: PREDNISONE
     Indication: Glomerulonephropathy
     Dosage: 50 MG
     Route: 065
     Dates: start: 2023
  2. ENALAPRIL [Concomitant]
     Active Substance: ENALAPRIL
     Indication: Hypertension
     Dosage: 20 MG
     Route: 065
  3. FUROSEMIDE [Concomitant]
     Active Substance: FUROSEMIDE
     Indication: Product used for unknown indication
     Dosage: 40 MG, EVERY 8 HOURS
     Route: 042
  4. METHYLPREDNISOLONE [Concomitant]
     Active Substance: METHYLPREDNISOLONE
     Indication: Product used for unknown indication
     Dosage: 500 MG, EVERY 24 HOURS FOR THREE DAYS
     Route: 042
  5. RITUXIMAB [Concomitant]
     Active Substance: RITUXIMAB
     Indication: Product used for unknown indication
     Dosage: 675 MG, WEEKLY FOR FOUR WEEK
     Route: 065

REACTIONS (2)
  - Thrombocytopenia [Unknown]
  - Drug resistance [Unknown]

NARRATIVE: CASE EVENT DATE: 20230101
